FAERS Safety Report 14527392 (Version 2)
Quarter: 2018Q1

REPORT INFORMATION
  Report Type: Other
  Country: CN (occurrence: CN)
  Receive Date: 20180213
  Receipt Date: 20180214
  Transmission Date: 20180509
  Serious: Yes (Other)
  Sender: FDA-Public Use
  Company Number: CN-AKRON, INC.-2041890

PATIENT
  Age: 75 Year
  Sex: Female

DRUGS (1)
  1. INDOCYANINE GREEN INJECTION, USP [Suspect]
     Active Substance: INDOCYANINE GREEN
     Route: 042

REACTIONS (1)
  - Haemodynamic instability [Recovering/Resolving]
